FAERS Safety Report 6568154-9 (Version None)
Quarter: 2010Q1

REPORT INFORMATION
  Report Type: 
  Country: None (occurrence: None)
  Receive Date: 20100203
  Receipt Date: 20100123
  Transmission Date: 20100710
  Serious: Yes (Death, Hospitalization)
  Sender: FDA-Public Use
  Company Number: NL-MEDIMMUNE-MEDI-0010315

PATIENT
  Sex: Female

DRUGS (1)
  1. SYNAGIS [Suspect]
     Route: 030

REACTIONS (3)
  - ILL-DEFINED DISORDER [None]
  - LUNG INFECTION [None]
  - PYREXIA [None]
